FAERS Safety Report 20977572 (Version 4)
Quarter: 2022Q3

REPORT INFORMATION
  Report Type: Spontaneous
  Country: BR (occurrence: BR)
  Receive Date: 20220618
  Receipt Date: 20220930
  Transmission Date: 20221027
  Serious: Yes (Life-Threatening, Hospitalization, Other)
  Sender: FDA-Public Use
  Company Number: BR-BIOMARINAP-BR-2022-143836

PATIENT

DRUGS (1)
  1. VIMIZIM [Suspect]
     Active Substance: ELOSULFASE ALFA
     Indication: Mucopolysaccharidosis IV
     Dosage: 2 MILLIGRAM/KILOGRAM, QW
     Route: 042
     Dates: start: 20191112

REACTIONS (4)
  - Cervical cord compression [Recovering/Resolving]
  - Monoplegia [Recovering/Resolving]
  - Spinal stenosis [Recovering/Resolving]
  - Tracheostomy [Unknown]

NARRATIVE: CASE EVENT DATE: 20220518
